FAERS Safety Report 5761830-7 (Version None)
Quarter: 2008Q2

REPORT INFORMATION
  Report Type: 
  Country: None (occurrence: None)
  Receive Date: 20080606
  Receipt Date: 20080527
  Transmission Date: 20081010
  Serious: Yes (Other)
  Sender: FDA-Public Use
  Company Number: JP-PFIZER INC-2008045886

PATIENT
  Sex: Female

DRUGS (2)
  1. SOLANAX [Suspect]
     Route: 048
  2. CELESTAMINE TAB [Concomitant]
     Route: 048
     Dates: start: 20080101, end: 20080301

REACTIONS (1)
  - PHOTOSENSITIVITY REACTION [None]
